FAERS Safety Report 6476498-4 (Version None)
Quarter: 2009Q4

REPORT INFORMATION
  Report Type: 
  Country: None (occurrence: None)
  Receive Date: 20091207
  Receipt Date: 20091202
  Transmission Date: 20100525
  Serious: Yes (Death, Other)
  Sender: FDA-Public Use
  Company Number: JP-JNJFOC-20091106118

PATIENT
  Sex: Female

DRUGS (14)
  1. ITRIZOLE [Suspect]
     Route: 041
     Dates: start: 20091107, end: 20091119
  2. ITRIZOLE [Suspect]
     Indication: DRUG USE FOR UNKNOWN INDICATION
     Route: 041
     Dates: start: 20091107, end: 20091119
  3. MEROPENEM HYDRATE [Concomitant]
     Route: 041
     Dates: start: 20091110, end: 20091114
  4. SULFAMETHOXAZOLE [Concomitant]
  5. HABEKACIN [Concomitant]
     Route: 041
  6. CORTICOSTEROID [Concomitant]
  7. AMINOPHYLLINE [Concomitant]
  8. SULPERAZON [Concomitant]
     Route: 042
     Dates: start: 20091105, end: 20091107
  9. ZOSYN [Concomitant]
     Route: 042
     Dates: start: 20091107, end: 20091110
  10. BENAMBAX [Concomitant]
     Route: 030
     Dates: start: 20091110, end: 20091113
  11. BAKTAR [Concomitant]
     Dosage: 9 DF ONE PER ONE DAY
     Route: 048
  12. SOLU-MEDROL [Concomitant]
     Route: 042
     Dates: start: 20091110, end: 20091112
  13. PREDONINE [Concomitant]
     Route: 042
  14. ELASPOL [Concomitant]
     Route: 042

REACTIONS (3)
  - CANDIDIASIS [None]
  - PNEUMONIA [None]
  - STAPHYLOCOCCAL INFECTION [None]
